FAERS Safety Report 25017374 (Version 1)
Quarter: 2025Q1

REPORT INFORMATION
  Report Type: Spontaneous
  Country: AU (occurrence: AU)
  Receive Date: 20250227
  Receipt Date: 20250227
  Transmission Date: 20250409
  Serious: Yes (Other)
  Sender: PADAGIS
  Company Number: AU-PADAGIS-2025PAD00220

PATIENT

DRUGS (1)
  1. BRINZOLAMIDE [Suspect]
     Active Substance: BRINZOLAMIDE
     Indication: Product used for unknown indication
     Route: 061

REACTIONS (3)
  - Angle closure glaucoma [Unknown]
  - Choroidal effusion [Recovered/Resolved]
  - Myopia [Unknown]
